FAERS Safety Report 4986988-9 (Version None)
Quarter: 2006Q2

REPORT INFORMATION
  Report Type: 
  Country: None (occurrence: None)
  Receive Date: 20060427
  Receipt Date: 20060427
  Transmission Date: 20061013
  Serious: Yes (Other)
  Sender: FDA-Public Use
  Company Number: None

PATIENT
  Sex: Male
  Weight: 87.5442 kg

DRUGS (1)
  1. TERIPARATIDE, 750 MCG INJECTION PEN, LILLY [Suspect]
     Indication: OSTEOPOROSIS
     Dosage: 20 MCG DAILY SUBCUTANEOUS
     Route: 058
     Dates: start: 20040901

REACTIONS (3)
  - ELECTRIC SHOCK [None]
  - IATROGENIC INJURY [None]
  - INJECTION SITE REACTION [None]
